FAERS Safety Report 17871060 (Version 1)
Quarter: 2020Q2

REPORT INFORMATION
  Report Type: Spontaneous
  Country: SA (occurrence: SA)
  Receive Date: 20200608
  Receipt Date: 20200608
  Transmission Date: 20200714
  Serious: No
  Sender: FDA-Public Use
  Company Number: None

PATIENT
  Age: 57 Year
  Sex: Female
  Weight: 63 kg

DRUGS (3)
  1. NP THYROID [Suspect]
     Active Substance: LEVOTHYROXINE\LIOTHYRONINE
     Indication: HYPOTHYROIDISM
     Dosage: ?          QUANTITY:1 TABLET(S);?
     Route: 048
     Dates: start: 20191001, end: 20200608
  2. SUBLINGUAL D3/K DROPS [Concomitant]
  3. SUBLINGUAL B-12 DROPS [Concomitant]

REACTIONS (6)
  - Temperature intolerance [None]
  - Muscular weakness [None]
  - Recalled product [None]
  - Recalled product administered [None]
  - Hypovitaminosis [None]
  - Fatigue [None]

NARRATIVE: CASE EVENT DATE: 20191101
